FAERS Safety Report 8551037-2 (Version None)
Quarter: 2012Q3

REPORT INFORMATION
  Report Type: 
  Country: None (occurrence: None)
  Receive Date: 20120730
  Receipt Date: 20120720
  Transmission Date: 20120928
  Serious: Yes (Hospitalization, Other)
  Sender: FDA-Public Use
  Company Number: IE-BAXTER-2012BAX008398

PATIENT
  Sex: Female

DRUGS (4)
  1. FLUOROURACIL [Suspect]
     Route: 042
     Dates: start: 20120404, end: 20120405
  2. LEUCOVORIN CALCIUM [Concomitant]
  3. OXALIPLATIN [Concomitant]
  4. DEXTROSE 5% [Suspect]
     Route: 042
     Dates: start: 20120404, end: 20120405

REACTIONS (7)
  - ESCHERICHIA URINARY TRACT INFECTION [None]
  - RENAL IMPAIRMENT [None]
  - RENAL FAILURE [None]
  - DEVICE INFUSION ISSUE [None]
  - DIARRHOEA [None]
  - COLITIS [None]
  - INCORRECT DRUG ADMINISTRATION RATE [None]
